FAERS Safety Report 12608347 (Version 2)
Quarter: 2017Q1

REPORT INFORMATION
  Report Type: Spontaneous
  Country: US (occurrence: US)
  Receive Date: 20160729
  Receipt Date: 20170112
  Transmission Date: 20170428
  Serious: No
  Sender: FDA-Public Use
  Company Number: US-DEPOMED, INC.-US-2016DEP009584

PATIENT

DRUGS (1)
  1. LAZANDA [Suspect]
     Active Substance: FENTANYL CITRATE
     Indication: PRODUCT USED FOR UNKNOWN INDICATION
     Dosage: UNK, 3-4 SPRAYS EVERY 4-6 HOURS PRN
     Route: 045
     Dates: start: 20150203

REACTIONS (3)
  - Product container issue [Unknown]
  - Prescribed overdose [Not Recovered/Not Resolved]
  - Drug dose omission [Unknown]
